FAERS Safety Report 8552579-6 (Version None)
Quarter: 2012Q3

REPORT INFORMATION
  Report Type: 
  Country: None (occurrence: None)
  Receive Date: 20120731
  Receipt Date: 20120730
  Transmission Date: 20120928
  Serious: Yes (Other)
  Sender: FDA-Public Use
  Company Number: DK-BAYER-2012-076248

PATIENT
  Sex: Female

DRUGS (2)
  1. MIRENA [Suspect]
     Indication: CONTRACEPTION
     Dosage: UNK
     Dates: start: 20120510, end: 20120529
  2. MIRENA [Suspect]
     Indication: DYSMENORRHOEA

REACTIONS (3)
  - PYREXIA [None]
  - ABDOMINAL PAIN [None]
  - INFECTION [None]
